FAERS Safety Report 5285702-X (Version None)
Quarter: 2007Q1

REPORT INFORMATION
  Report Type: 
  Country: None (occurrence: None)
  Receive Date: 20070126
  Receipt Date: 20050826
  Transmission Date: 20070707
  Serious: Yes (Hospitalization)
  Sender: FDA-Public Use
  Company Number: 2006CT001176

PATIENT
  Age: 49 Year
  Sex: Female
  Weight: 58 kg

DRUGS (3)
  1. VENTAVIS [Suspect]
     Indication: PULMONARY HYPERTENSION
     Dosage: SEE IMAGE
     Route: 055
     Dates: start: 20050606, end: 20050812
  2. VENTAVIS [Suspect]
     Indication: PULMONARY HYPERTENSION
     Dosage: SEE IMAGE
     Route: 055
     Dates: start: 20050813, end: 20050826
  3. TRACLEER [Suspect]
     Indication: PULMONARY HYPERTENSION
     Dates: start: 20041201

REACTIONS (3)
  - HEADACHE [None]
  - HYPOTENSION [None]
  - NAUSEA [None]
